FAERS Safety Report 6824574-6 (Version None)
Quarter: 2010Q3

REPORT INFORMATION
  Report Type: 
  Country: None (occurrence: None)
  Receive Date: 20100708
  Receipt Date: 20061106
  Transmission Date: 20110219
  Serious: No
  Sender: FDA-Public Use
  Company Number: US-PFIZER INC-2006138131

PATIENT
  Sex: Female
  Weight: 95.25 kg

DRUGS (7)
  1. CHANTIX [Suspect]
     Indication: SMOKING CESSATION THERAPY
     Route: 048
     Dates: start: 20060101
  2. THEOPHYLLINE [Concomitant]
     Route: 048
     Dates: end: 20061001
  3. HYZAAR [Concomitant]
     Route: 048
  4. CITALOPRAM HYDROBROMIDE [Concomitant]
     Route: 048
  5. ADVAIR DISKUS 100/50 [Concomitant]
  6. SPIRIVA [Concomitant]
  7. ALBUTEROL [Concomitant]

REACTIONS (4)
  - CONTUSION [None]
  - PRURITUS [None]
  - RESPIRATORY TRACT INFECTION VIRAL [None]
  - URTICARIA [None]
